FAERS Safety Report 5007628-9 (Version None)
Quarter: 2006Q2

REPORT INFORMATION
  Report Type: 
  Country: None (occurrence: None)
  Receive Date: 20060522
  Receipt Date: 20060511
  Transmission Date: 20061013
  Serious: Yes (Hospitalization)
  Sender: FDA-Public Use
  Company Number: US-ROCHE-447736

PATIENT
  Age: 22 Year
  Sex: Female
  Weight: 53.7 kg

DRUGS (4)
  1. PEGASYS [Suspect]
     Dosage: 90 MCG WEEKLY WAS TRITRATED UP TO 135 MCG WEEKLY DURING THE THERAPY WHICH WAS PLANNED FOR 2 MONTHS.
     Route: 058
     Dates: start: 20060328, end: 20060511
  2. CLONIDINE [Concomitant]
     Dosage: 0.1 TWICE DAILY.
     Route: 048
     Dates: start: 20051001
  3. LABETALOL [Concomitant]
     Route: 048
     Dates: start: 20051001
  4. NORVASC [Concomitant]
     Route: 048
     Dates: start: 20060101

REACTIONS (2)
  - SUBDURAL HAEMATOMA [None]
  - THROMBOCYTOPENIA [None]
